FAERS Safety Report 24752897 (Version 1)
Quarter: 2024Q4

REPORT INFORMATION
  Report Type: Spontaneous
  Country: US (occurrence: None)
  Receive Date: 20241218
  Receipt Date: 20241218
  Transmission Date: 20250115
  Serious: Yes (Hospitalization)
  Sender: Public
  Company Number: None

PATIENT
  Sex: Female

DRUGS (7)
  1. TADALAFIL [Suspect]
     Active Substance: TADALAFIL
     Indication: Pulmonary arterial hypertension
     Dosage: FREQUENCY : DAILY;?
     Route: 048
     Dates: start: 202403
  2. REMODULIN [Concomitant]
     Active Substance: TREPROSTINIL
     Dosage: FREQUENCY : AT BEDTIME;?
     Route: 048
     Dates: start: 202403
  3. ADCIRCA [Concomitant]
     Active Substance: TADALAFIL
  4. REPLACE REMTY WTY PUMP KIT [Concomitant]
  5. C-FORMULATION C TOPICAL [Concomitant]
  6. LETAIRIS [Concomitant]
     Active Substance: AMBRISENTAN
  7. TREPROSTINIL [Concomitant]
     Active Substance: TREPROSTINIL

REACTIONS (2)
  - Blood pressure decreased [None]
  - Diverticulitis [None]
